FAERS Safety Report 16620686 (Version 1)
Quarter: 2019Q3

REPORT INFORMATION
  Report Type: Report from Study
  Country: US (occurrence: US)
  Receive Date: 20190723
  Receipt Date: 20190723
  Transmission Date: 20191004
  Serious: Yes (Other)
  Sender: FDA-Public Use
  Company Number: US-GILEAD-2019-0419664

PATIENT
  Age: 77 Year
  Sex: Female

DRUGS (1)
  1. RANOLAZINE. [Suspect]
     Active Substance: RANOLAZINE
     Indication: CARDIAC FAILURE CONGESTIVE
     Dosage: 500 MG, BID
     Route: 048

REACTIONS (5)
  - Off label use [Not Recovered/Not Resolved]
  - Stent placement [Not Recovered/Not Resolved]
  - Cataract [Not Recovered/Not Resolved]
  - Gout [Not Recovered/Not Resolved]
  - Cardiac assistance device user [Not Recovered/Not Resolved]
